FAERS Safety Report 9675804 (Version 1)
Quarter: 2013Q4

REPORT INFORMATION
  Report Type: Spontaneous
  Country: FR (occurrence: FR)
  Receive Date: 20131107
  Receipt Date: 20131107
  Transmission Date: 20140711
  Serious: Yes (Hospitalization)
  Sender: FDA-Public Use
  Company Number: FR-BRISTOL-MYERS SQUIBB COMPANY-19721216

PATIENT
  Age: 79 Year
  Sex: Male

DRUGS (6)
  1. COUMADIN TABS 2 MG [Suspect]
     Route: 048
     Dates: start: 20130731
  2. LASILIX [Concomitant]
  3. SECTRAL [Concomitant]
  4. TAHOR [Concomitant]
  5. NOVOMIX [Concomitant]
  6. DOLIPRANE [Concomitant]

REACTIONS (4)
  - Haematoma [Recovered/Resolved]
  - Fall [Recovered/Resolved]
  - Pain [Recovered/Resolved]
  - International normalised ratio increased [Recovered/Resolved]
